FAERS Safety Report 10236207 (Version 1)
Quarter: 2014Q1

REPORT INFORMATION
  Report Type: Spontaneous
  Country: US (occurrence: None)
  Receive Date: 20140306
  Receipt Date: 20140306
  Transmission Date: 20141002
  Serious: Yes (Other)
  Sender: FDA-Public Use
  Company Number: 163-21880-13111663

PATIENT
  Age: 69 Year
  Sex: Female

DRUGS (7)
  1. REVLIMID (LENALIDOMIDE) (10 MILLIGRAM, CAPSULES) [Suspect]
     Indication: PLASMA CELL MYELOMA
     Route: 048
     Dates: start: 20130124, end: 20131030
  2. LANSOPRAZOLE(LANSOPRAZOLE) [Concomitant]
  3. DOCUSATE(DOCUSATE)(UKNOWN) [Concomitant]
  4. LOSARTAN(LOSARTAN) [Concomitant]
  5. METFORMIN(METFORMIN)(UKNOWN) [Concomitant]
  6. LOVASTATIN(LOVASTATIN)(UKNONWN) [Concomitant]
  7. FUROSEMIDE(FUROSEMIDE)(UKNOWN) [Concomitant]

REACTIONS (2)
  - Platelet count decreased [None]
  - Haemoglobin decreased [None]
